FAERS Safety Report 16361091 (Version 2)
Quarter: 2019Q2

REPORT INFORMATION
  Report Type: Report from Study
  Country: None (occurrence: ES)
  Receive Date: 20190528
  Receipt Date: 20190530
  Transmission Date: 20190711
  Serious: Yes (Hospitalization)
  Sender: FDA-Public Use
  Company Number: ES-ABBVIE-19S-144-2798855-00

PATIENT
  Age: 64 Year
  Sex: Female

DRUGS (1)
  1. DUODOPA [Suspect]
     Active Substance: CARBIDOPA\LEVODOPA
     Indication: PARKINSON^S DISEASE
     Route: 050
     Dates: start: 20190521

REACTIONS (6)
  - Inflammation [Unknown]
  - Unevaluable event [Unknown]
  - Pneumoperitoneum [Recovering/Resolving]
  - Abdominal pain upper [Unknown]
  - Device dislocation [Unknown]
  - Dyspepsia [Unknown]

NARRATIVE: CASE EVENT DATE: 201905
